FAERS Safety Report 5589665-9 (Version None)
Quarter: 2008Q1

REPORT INFORMATION
  Report Type: 
  Country: None (occurrence: None)
  Receive Date: 20080114
  Receipt Date: 20080103
  Transmission Date: 20080703
  Serious: Yes (Other)
  Sender: FDA-Public Use
  Company Number: B0376815A

PATIENT
  Age: 20 Year
  Sex: Female

DRUGS (2)
  1. PAROXETINE [Suspect]
     Dosage: 20MG PER DAY
     Dates: start: 19990601
  2. PROZAC [Concomitant]
     Dates: start: 20041207

REACTIONS (35)
  - ABDOMINAL PAIN UPPER [None]
  - ABNORMAL DREAMS [None]
  - AFFECT LABILITY [None]
  - AGITATION [None]
  - ANGER [None]
  - ANXIETY [None]
  - APATHY [None]
  - COLD SWEAT [None]
  - CONFUSIONAL STATE [None]
  - CONVULSION [None]
  - DELUSION [None]
  - DIARRHOEA [None]
  - DISORIENTATION [None]
  - DISSOCIATION [None]
  - DISTURBANCE IN ATTENTION [None]
  - DIZZINESS [None]
  - FATIGUE [None]
  - FEAR [None]
  - FLAT AFFECT [None]
  - HEADACHE [None]
  - HYPERHIDROSIS [None]
  - INFLUENZA LIKE ILLNESS [None]
  - INSOMNIA [None]
  - INTENTIONAL SELF-INJURY [None]
  - MALAISE [None]
  - NAUSEA [None]
  - PAIN [None]
  - PARAESTHESIA [None]
  - PARANOIA [None]
  - PREMENSTRUAL SYNDROME [None]
  - SELF-INJURIOUS IDEATION [None]
  - SUICIDAL IDEATION [None]
  - TEARFULNESS [None]
  - THIRST [None]
  - WITHDRAWAL SYNDROME [None]
